FAERS Safety Report 16698592 (Version 2)
Quarter: 2019Q3

REPORT INFORMATION
  Report Type: Spontaneous
  Country: LB (occurrence: LB)
  Receive Date: 20190813
  Receipt Date: 20190816
  Transmission Date: 20191004
  Serious: Yes (Death, Life-Threatening, Other)
  Sender: FDA-Public Use
  Company Number: LB-PFIZER INC-2019343931

PATIENT
  Age: 10 Year
  Sex: Male

DRUGS (15)
  1. DOXORUBICIN HCL [Suspect]
     Active Substance: DOXORUBICIN HYDROCHLORIDE
     Indication: GLIOBLASTOMA MULTIFORME
     Dosage: UNK, CYCLIC
  2. VINCRISTINE [Suspect]
     Active Substance: VINCRISTINE
     Dosage: UNK (RE-INDUCTION PHASE)
  3. METHOTREXATE. [Suspect]
     Active Substance: METHOTREXATE
     Indication: GLIOBLASTOMA MULTIFORME
     Dosage: UNK, UNK (HIGH DOSE)
     Route: 037
  4. DEXAMETHASONE. [Suspect]
     Active Substance: DEXAMETHASONE
     Indication: GLIOBLASTOMA MULTIFORME
     Dosage: UNK (RE-INDUCTION PHASE)
  5. DAUNORUBICIN [Suspect]
     Active Substance: DAUNORUBICIN
     Indication: GLIOBLASTOMA MULTIFORME
     Dosage: UNK (ACCORDING TO THE BFM-95 PROTOCOL)
  6. THIOGUANINE [Suspect]
     Active Substance: THIOGUANINE
     Indication: GLIOBLASTOMA MULTIFORME
     Dosage: UNK (RE-INDUCTION PHASE)
  7. CYTARABINE. [Suspect]
     Active Substance: CYTARABINE
     Dosage: UNK (RE-INDUCTION PHASE)
  8. CYTARABINE. [Suspect]
     Active Substance: CYTARABINE
     Indication: GLIOBLASTOMA MULTIFORME
     Dosage: UNK (ACCORDING TO THE BFM-95 PROTOCOL)
  9. L-ASPARAGINASE [Suspect]
     Active Substance: ASPARAGINASE
     Dosage: UNK (RE-INDUCTION PHASE)
  10. VINCRISTINE [Suspect]
     Active Substance: VINCRISTINE
     Indication: GLIOBLASTOMA MULTIFORME
     Dosage: UNK (ACCORDING TO THE BFM-95 PROTOCOL)
  11. METHOTREXATE. [Suspect]
     Active Substance: METHOTREXATE
     Dosage: 6 DF, UNK (6 INTRATHECAL METHOTREXATE DOSES)
     Route: 037
  12. CYCLOPHOSPHAMIDE. [Suspect]
     Active Substance: CYCLOPHOSPHAMIDE
     Indication: GLIOBLASTOMA MULTIFORME
     Dosage: UNK (ACCORDING TO THE BFM-95 PROTOCOL)
  13. L-ASPARAGINASE [Suspect]
     Active Substance: ASPARAGINASE
     Indication: GLIOBLASTOMA MULTIFORME
     Dosage: UNK (ACCORDING TO THE BFM-95)
  14. MERCAPTOPURINE. [Suspect]
     Active Substance: MERCAPTOPURINE
     Indication: GLIOBLASTOMA MULTIFORME
     Dosage: UNK, UNK (HIGH DOSE)
     Route: 048
  15. PREDNISONE. [Suspect]
     Active Substance: PREDNISONE
     Indication: GLIOBLASTOMA MULTIFORME
     Dosage: UNK (ACCORDING TO THE BFM-95 PROTOCOL)

REACTIONS (4)
  - Bronchopulmonary aspergillosis [Unknown]
  - Product use in unapproved indication [Unknown]
  - Aspergillus infection [Fatal]
  - Off label use [Unknown]
